FAERS Safety Report 24426644 (Version 1)
Quarter: 2024Q4

REPORT INFORMATION
  Report Type: Report from Study
  Country: FR (occurrence: FR)
  Receive Date: 20241011
  Receipt Date: 20241011
  Transmission Date: 20250114
  Serious: Yes (Other)
  Sender: ADVANZ PHARMA
  Company Number: FR-SANOFI-AVENTIS R+D-2024SA287744

PATIENT

DRUGS (1)
  1. HYDROXYCHLOROQUINE [Suspect]
     Active Substance: HYDROXYCHLOROQUINE
     Indication: Chronic graft versus host disease
     Dosage: UNK

REACTIONS (7)
  - Osteogenesis imperfecta [Unknown]
  - Dry skin [Unknown]
  - Dry eye [Unknown]
  - Eye pruritus [Unknown]
  - Osteoporosis [Unknown]
  - Fracture [Unknown]
  - Alopecia [Unknown]
